FAERS Safety Report 4434435-8 (Version None)
Quarter: 2004Q3

REPORT INFORMATION
  Report Type: 
  Country: None (occurrence: None)
  Receive Date: 20040726
  Receipt Date: 20040301
  Transmission Date: 20050211
  Serious: No
  Sender: FDA-Public Use
  Company Number: USA040259091

PATIENT
  Age: 76 Year
  Sex: Female

DRUGS (13)
  1. FORTEO [Suspect]
     Indication: OSTEOPOROSIS
     Dates: start: 20031201
  2. CENTRUM [Concomitant]
  3. VITAMIN A [Concomitant]
  4. CALCIUM [Concomitant]
  5. STOOL SOFTENER (DOCUSATE SODIUM) [Concomitant]
  6. ENDOCET [Concomitant]
  7. SYNTHROID [Concomitant]
  8. PROTONIX [Concomitant]
  9. FUROSEMIDE [Concomitant]
  10. DIGITEX (DIGOXIN) [Concomitant]
  11. LEXAPRO [Concomitant]
  12. BEXTRA [Concomitant]
  13. WARFARIN SODIUM [Concomitant]

REACTIONS (3)
  - DIARRHOEA [None]
  - EYE DISORDER [None]
  - FATIGUE [None]
